FAERS Safety Report 12522702 (Version 2)
Quarter: 2016Q3

REPORT INFORMATION
  Report Type: Spontaneous
  Country: PL (occurrence: PL)
  Receive Date: 20160701
  Receipt Date: 20160803
  Transmission Date: 20161109
  Serious: Yes (Hospitalization)
  Sender: FDA-Public Use
  Company Number: PL-TEVA-670298ISR

PATIENT
  Age: 2 Year
  Sex: Female
  Weight: 17 kg

DRUGS (10)
  1. TRAMAL [Concomitant]
     Active Substance: TRAMADOL
     Dates: end: 20160607
  2. BISEPTOL [Concomitant]
     Active Substance: SULFAMETHOXAZOLE\TRIMETHOPRIM
  3. ERWINASE [Concomitant]
     Active Substance: ASPARAGINASE ERWINIA CHRYSANTHEMI
     Dosage: STRENGTH 10000 UNIT/VIAL
     Dates: end: 20160607
  4. VINCRISTINE TEVA [Suspect]
     Active Substance: VINCRISTINE
     Indication: ACUTE LYMPHOCYTIC LEUKAEMIA
     Route: 042
     Dates: start: 20160523, end: 20160606
  5. DEXAMETHASONE. [Concomitant]
     Active Substance: DEXAMETHASONE
  6. HYDROXYZYNA [Concomitant]
     Active Substance: FLUOXETINE HYDROCHLORIDE
     Dates: end: 20160607
  7. NOXAFIL [Suspect]
     Active Substance: POSACONAZOLE
     Indication: PROPHYLAXIS
     Route: 048
     Dates: start: 20160523, end: 20160607
  8. HEPA-MERZ [Concomitant]
  9. METRONIDAZOL [Concomitant]
     Active Substance: METRONIDAZOLE
  10. NO-SPA [Concomitant]
     Active Substance: DROTAVERINE HYDROCHLORIDE

REACTIONS (5)
  - Posterior reversible encephalopathy syndrome [Recovered/Resolved]
  - Hypertension [Recovered/Resolved]
  - Stupor [Recovered/Resolved]
  - Unresponsive to stimuli [Recovered/Resolved]
  - Mydriasis [Recovered/Resolved]

NARRATIVE: CASE EVENT DATE: 20160607
